FAERS Safety Report 5773984-7 (Version None)
Quarter: 2008Q2

REPORT INFORMATION
  Report Type: 
  Country: None (occurrence: None)
  Receive Date: 20080601
  Receipt Date: 20080315
  Transmission Date: 20081010
  Serious: No
  Sender: FDA-Public Use
  Company Number: US200803003843

PATIENT
  Age: 58 Year
  Sex: Female
  Weight: 104.3 kg

DRUGS (3)
  1. BYETTA [Suspect]
     Indication: TYPE 2 DIABETES MELLITUS
     Dosage: 5 UG, 2/D, SUBCUTANEOUS
     Route: 058
     Dates: start: 20080315
  2. ACTOS /USA/  (PIOGLITAZONE HYDROCHLORIDE) [Concomitant]
  3. GLUCOTROL XL [Concomitant]

REACTIONS (6)
  - ABDOMINAL DISCOMFORT [None]
  - ABDOMINAL DISTENSION [None]
  - BALANCE DISORDER [None]
  - DIZZINESS [None]
  - FEELING JITTERY [None]
  - INJECTION SITE PAIN [None]
